FAERS Safety Report 9405237 (Version 1)
Quarter: 2013Q3

REPORT INFORMATION
  Report Type: Spontaneous
  Country: FR (occurrence: FR)
  Receive Date: 20130717
  Receipt Date: 20130717
  Transmission Date: 20140515
  Serious: Yes (Hospitalization, Other)
  Sender: FDA-Public Use
  Company Number: FR-BAXTER-2013BAX026716

PATIENT
  Age: 6 Month
  Sex: Female

DRUGS (4)
  1. CHLORURE DE SODIUM 0.9% VIAFLO, SOLUTION POUR PERFUSION [Suspect]
     Indication: ANTIBIOTIC THERAPY
     Route: 042
     Dates: start: 20120227, end: 20120301
  2. OMNIPAQUE [Suspect]
     Indication: SCAN BRAIN
     Route: 042
     Dates: start: 20120301, end: 20120301
  3. CLAFORAN [Suspect]
     Indication: ANTIBIOTIC THERAPY
     Route: 065
     Dates: start: 20120227
  4. VANCOMYCIN [Suspect]
     Indication: ANTIBIOTIC THERAPY
     Route: 065
     Dates: start: 20120227

REACTIONS (6)
  - Extravasation [Unknown]
  - Infusion site extravasation [Recovered/Resolved]
  - Oedema peripheral [Recovered/Resolved]
  - Injection site erythema [Recovered/Resolved]
  - Skin discolouration [Unknown]
  - Pulse absent [Unknown]
